FAERS Safety Report 7813022-5 (Version None)
Quarter: 2011Q4

REPORT INFORMATION
  Report Type: 
  Country: None (occurrence: None)
  Receive Date: 20111013
  Receipt Date: 20111005
  Transmission Date: 20120403
  Serious: Yes (Hospitalization)
  Sender: FDA-Public Use
  Company Number: US-BAYER-2011-095947

PATIENT
  Age: 67 Year
  Sex: Female
  Weight: 87.982 kg

DRUGS (10)
  1. PROZAC [Concomitant]
  2. OXYGEN [Concomitant]
     Dosage: DAILY
  3. AVELOX [Suspect]
     Dosage: CONSUMER TOOK AVELOX ON AND OFF
     Route: 048
     Dates: start: 20030101
  4. OSCAL [Concomitant]
  5. PREDNISONE [Concomitant]
  6. BLOOD PRESSURE MEDICATION (NOS) [Concomitant]
  7. ALBUTEROL [Concomitant]
  8. PROBIOTICS [Suspect]
     Indication: SUPPLEMENTATION THERAPY
     Dosage: 1 DF, QD
     Route: 048
     Dates: start: 20110809, end: 20110908
  9. ANTIBIOTICS [Concomitant]
     Dosage: UNK UNK, PRN
  10. MUCINEX [Concomitant]
     Dosage: 120 MG, BID

REACTIONS (5)
  - FEELING HOT [None]
  - GASTRIC DISORDER [None]
  - INCONTINENCE [None]
  - TONGUE BLISTERING [None]
  - CHEST DISCOMFORT [None]
